FAERS Safety Report 4535842-5 (Version None)
Quarter: 2004Q4

REPORT INFORMATION
  Report Type: 
  Country: None (occurrence: None)
  Receive Date: 20041223
  Receipt Date: 20040416
  Transmission Date: 20050328
  Serious: No
  Sender: FDA-Public Use
  Company Number: US-GLAXOSMITHKLINE-A0507458A

PATIENT
  Age: 67 Year
  Sex: Female

DRUGS (8)
  1. FLONASE [Suspect]
     Dosage: 2SPR PER DAY
     Route: 045
     Dates: start: 20040101
  2. PROTONIX [Concomitant]
  3. METOCLOPRAMIDE [Concomitant]
  4. LOTREL [Concomitant]
  5. HYDROCHLOROTHIAZIDE [Concomitant]
  6. HUMIBID LA [Concomitant]
  7. ZETIA [Concomitant]
  8. ZOCOR [Concomitant]

REACTIONS (2)
  - DRUG INEFFECTIVE [None]
  - EPISTAXIS [None]
